FAERS Safety Report 4294709-0 (Version None)
Quarter: 2004Q1

REPORT INFORMATION
  Report Type: 
  Country: None (occurrence: None)
  Receive Date: 20040211
  Receipt Date: 20040202
  Transmission Date: 20041129
  Serious: Yes (Other)
  Sender: FDA-Public Use
  Company Number: GB-JNJFOC-20040200705

PATIENT
  Age: 68 Year
  Sex: Male

DRUGS (1)
  1. SPORANOX [Suspect]
     Indication: ONYCHOMYCOSIS
     Dosage: PULSE THERAPY. 2 TWICE A DAY FOR 1 WEEK A MONTH X 3
     Dates: start: 20031111, end: 20040126

REACTIONS (1)
  - GOUT [None]
